APPROVED DRUG PRODUCT: GENTAMICIN SULFATE
Active Ingredient: GENTAMICIN SULFATE
Strength: EQ 40MG BASE/ML
Dosage Form/Route: INJECTABLE;INJECTION
Application: A062340 | Product #001
Applicant: PHARMACEUTICAL SPECIALIST ASSOC
Approved: Mar 28, 1983 | RLD: No | RS: No | Type: DISCN